FAERS Safety Report 19231841 (Version 1)
Quarter: 2021Q2

REPORT INFORMATION
  Report Type: Spontaneous
  Country: US (occurrence: US)
  Receive Date: 20210507
  Receipt Date: 20210507
  Transmission Date: 20210717
  Serious: Yes (Other)
  Sender: FDA-Public Use
  Company Number: US-SHILPA MEDICARE LIMITED-SML-US-2021-00523

PATIENT
  Age: 18 Year

DRUGS (2)
  1. AZACITIDINE, UNKNOWN [Suspect]
     Active Substance: AZACITIDINE
     Indication: ACUTE MYELOID LEUKAEMIA
     Dosage: 30 DAYS CYCLE FOR A TOTAL OF 6 CYCLES (FOR DAY 90, DAY 120, DAY 150,DAY 180 AND DAY 210 OF HSCT.)
     Route: 042
  2. AZACITIDINE, UNKNOWN [Suspect]
     Active Substance: AZACITIDINE
     Route: 042

REACTIONS (1)
  - Cytopenia [Recovered/Resolved]
